FAERS Safety Report 7790750-1 (Version None)
Quarter: 2011Q3

REPORT INFORMATION
  Report Type: 
  Country: None (occurrence: None)
  Receive Date: 20110930
  Receipt Date: 20110926
  Transmission Date: 20111222
  Serious: Yes (Death, Other)
  Sender: FDA-Public Use
  Company Number: US-AMGEN-QUU432025

PATIENT
  Age: 70 Year
  Sex: Male

DRUGS (24)
  1. CIPRO [Concomitant]
  2. MEGACE [Concomitant]
  3. NEUROTIN                           /00949202/ [Concomitant]
     Indication: PAIN
     Dosage: 300Q MG, TID
  4. NOXAFIL [Concomitant]
     Indication: PROPHYLAXIS
     Dosage: 400 MG, TID
  5. VALTREX [Concomitant]
     Indication: INFECTION PROPHYLAXIS
  6. CALCIUM CARBONATE [Concomitant]
     Dosage: 600 MG, TID
  7. CEFEPIME [Concomitant]
  8. NEUPOGEN [Concomitant]
  9. XOPENEX [Concomitant]
     Dosage: 0.03 MG, UNK
  10. ALBUTEROL [Concomitant]
     Indication: COUGH
  11. TACROLIMUS [Concomitant]
     Dosage: 0.5 MG, TID
  12. MEDROL [Concomitant]
     Indication: GOUT
     Dosage: 4 MG, UNK
  13. ALBUTEROL [Concomitant]
     Indication: WHEEZING
  14. COLISTINE [Concomitant]
     Indication: PNEUMONIA
     Dosage: 75 MG, UNK
  15. FOLIC ACID [Concomitant]
     Dosage: 1 MG, UNK
  16. CORTICOSTEROID NOS [Concomitant]
     Dosage: UNK UNK, UNK
     Dates: start: 20080301
  17. MUCINEX [Concomitant]
     Indication: COUGH
     Dosage: 500 MG, TID
  18. ALLOPURINOL [Concomitant]
     Indication: GOUT
     Dosage: 300 MG, UNK
  19. LASIX [Concomitant]
     Indication: FLUID RETENTION
     Dosage: 40 MG, UNK
  20. COREG [Concomitant]
     Indication: BLOOD PRESSURE
     Dosage: 6.25 MG, TID
  21. MEPRON                             /00049601/ [Concomitant]
     Indication: PROPHYLAXIS
     Dosage: 750 MG, UNK
  22. NPLATE [Suspect]
     Indication: IDIOPATHIC THROMBOCYTOPENIC PURPURA
     Dosage: 10 MUG/KG, UNK
     Dates: start: 20081120, end: 20090319
  23. IMODIUM [Concomitant]
     Indication: DIARRHOEA
     Dosage: 2 MG, Q6H
  24. MAGNESIUM OXIDE [Concomitant]
     Dosage: 500 MG, UNK

REACTIONS (8)
  - CHRONIC LYMPHOCYTIC LEUKAEMIA [None]
  - CYTOMEGALOVIRUS INFECTION [None]
  - ASTHENIA [None]
  - FEBRILE NEUTROPENIA [None]
  - PANCYTOPENIA [None]
  - GRAFT VERSUS HOST DISEASE [None]
  - PNEUMONIA [None]
  - FATIGUE [None]
